FAERS Safety Report 13102342 (Version 2)
Quarter: 2017Q1

REPORT INFORMATION
  Report Type: Spontaneous
  Country: US (occurrence: US)
  Receive Date: 20170110
  Receipt Date: 20170120
  Transmission Date: 20170428
  Serious: Yes (Hospitalization, Other)
  Sender: FDA-Public Use
  Company Number: US-SAOL THERAPEUTICS-2016SAO01325

PATIENT
  Age: 17 Year
  Sex: Female
  Weight: 45.35 kg

DRUGS (2)
  1. BACLOFEN. [Suspect]
     Active Substance: BACLOFEN
     Dosage: 424.8 ?G, \DAY
     Dates: start: 20160919, end: 20161221
  2. BACLOFEN. [Suspect]
     Active Substance: BACLOFEN
     Dosage: 300 ?G, \DAY
     Dates: start: 20161221

REACTIONS (6)
  - Overdose [Recovered/Resolved]
  - Underdose [Recovered/Resolved]
  - Complication associated with device [Recovered/Resolved]
  - Implant site extravasation [Unknown]
  - Hypotonia [Unknown]
  - Asthenia [Unknown]

NARRATIVE: CASE EVENT DATE: 201503
